FAERS Safety Report 6145786-3 (Version None)
Quarter: 2009Q2

REPORT INFORMATION
  Report Type: 
  Country: None (occurrence: None)
  Receive Date: 20090407
  Receipt Date: 20090401
  Transmission Date: 20091009
  Serious: Yes (Other)
  Sender: FDA-Public Use
  Company Number: US-ELI_LILLY_AND_COMPANY-US200810007379

PATIENT
  Sex: Female
  Weight: 106.58 kg

DRUGS (15)
  1. BYETTA [Suspect]
     Indication: TYPE 2 DIABETES MELLITUS
     Dosage: 5 UG, 2/D
     Route: 058
     Dates: start: 20080201, end: 20080218
  2. BYETTA [Suspect]
     Dosage: 10 UG, 2/D
     Route: 058
     Dates: start: 20080219, end: 20080416
  3. LEVEMIR [Concomitant]
     Dosage: 40 U, EACH EVENING
  4. ASPIRIN [Concomitant]
     Dosage: 81 MG, DAILY (1/D)
  5. COREG [Concomitant]
     Dosage: 6.25 MG, 2/D
  6. DIOVAN [Concomitant]
     Dosage: UNK, DAILY (1/D)
  7. KLOR-CON [Concomitant]
     Dosage: 20 MEQ, DAILY (1/D)
  8. LASIX [Concomitant]
     Dosage: 40 MG, DAILY (1/D)
  9. NITROGLYCERIN [Concomitant]
     Dosage: 0.4 MG, AS NEEDED
  10. PLAVIX [Concomitant]
     Dosage: 75 MG, DAILY (1/D)
  11. PROTONIX [Concomitant]
     Dosage: 40 MG, DAILY (1/D)
  12. SYMBICORT [Concomitant]
  13. VITAMIN D [Concomitant]
     Dosage: UNK, DAILY (1/D)
     Route: 048
  14. FLAXSEED OIL [Concomitant]
     Dosage: UNK, DAILY (1/D)
     Route: 048
  15. TRICOR [Concomitant]
     Dosage: 145 MG, DAILY (1/D)

REACTIONS (3)
  - DIABETIC RETINOPATHY [None]
  - PANCREATITIS [None]
  - WEIGHT DECREASED [None]
